FAERS Safety Report 7394368-4 (Version None)
Quarter: 2011Q2

REPORT INFORMATION
  Report Type: 
  Country: None (occurrence: None)
  Receive Date: 20110405
  Receipt Date: 20110323
  Transmission Date: 20111010
  Serious: Yes (Hospitalization, Other)
  Sender: FDA-Public Use
  Company Number: US-ELI_LILLY_AND_COMPANY-US201004002927

PATIENT
  Sex: Female

DRUGS (21)
  1. FORTEO [Suspect]
     Dosage: 20 UG, DAILY (1/D)
  2. SUCRALFATE [Concomitant]
  3. METFORMIN [Concomitant]
  4. OXYGEN [Concomitant]
  5. BISOPROLOL FUMARATE [Concomitant]
  6. SPIRIVA [Concomitant]
  7. FORTEO [Suspect]
     Dosage: 20 UG, DAILY (1/D)
  8. PANTOPRAZOLO [Concomitant]
  9. KLOR-CON [Concomitant]
  10. FERROUS                            /00023505/ [Concomitant]
  11. PROVENTIL /00139501/ [Concomitant]
  12. FORTEO [Suspect]
     Indication: OSTEOPOROSIS
     Dosage: 20 UG, DAILY (1/D)
     Route: 065
     Dates: start: 20100302
  13. ADVAIR DISKUS 100/50 [Concomitant]
  14. MUCINEX [Concomitant]
  15. FORTEO [Suspect]
     Dosage: 20 UG, QD
  16. ZYFLO [Concomitant]
     Dosage: 600 MG, UNKNOWN
  17. ROPINIROLE [Concomitant]
  18. QVAR 40 [Concomitant]
  19. ALBUTEROL [Concomitant]
  20. PREDNISONE [Concomitant]
  21. FUROSEMIDE [Concomitant]

REACTIONS (14)
  - UPPER RESPIRATORY TRACT INFECTION [None]
  - BACK PAIN [None]
  - DYSPNOEA [None]
  - TOTAL LUNG CAPACITY DECREASED [None]
  - DIARRHOEA [None]
  - INJECTION SITE HAEMATOMA [None]
  - MUSCLE SPASMS [None]
  - ASTHENIA [None]
  - RALES [None]
  - FEELING ABNORMAL [None]
  - COUGH [None]
  - PNEUMONIA [None]
  - NAUSEA [None]
  - INJECTION SITE PAIN [None]
